FAERS Safety Report 23750117 (Version 6)
Quarter: 2024Q4

REPORT INFORMATION
  Report Type: Report from Study
  Country: CA (occurrence: CA)
  Receive Date: 20240417
  Receipt Date: 20241001
  Transmission Date: 20250114
  Serious: Yes (Other)
  Sender: JOHNSON AND JOHNSON
  Company Number: CA-JNJFOC-20240424146

PATIENT
  Age: 72 Year
  Sex: Female

DRUGS (6)
  1. SIMPONI [Suspect]
     Active Substance: GOLIMUMAB
     Indication: Rheumatoid arthritis
     Route: 058
     Dates: start: 20220722
  2. SIMPONI [Suspect]
     Active Substance: GOLIMUMAB
     Route: 058
  3. SIMPONI [Suspect]
     Active Substance: GOLIMUMAB
     Route: 058
  4. SIMPONI [Suspect]
     Active Substance: GOLIMUMAB
     Dosage: ON 21-AUG-2024, THE PATIENT RECEIVED 17TH INJECTION OF USTEKINUMAB AT A DOSE OF 50 MG.
     Route: 058
     Dates: start: 20220518
  5. SIMPONI [Suspect]
     Active Substance: GOLIMUMAB
     Route: 058
  6. FLUOCINONIDE [Concomitant]
     Active Substance: FLUOCINONIDE
     Indication: Product used for unknown indication

REACTIONS (8)
  - Lower respiratory tract infection [Recovering/Resolving]
  - Aortic aneurysm [Recovering/Resolving]
  - Pulmonary mass [Not Recovered/Not Resolved]
  - Eczema [Unknown]
  - Neurodermatitis [Not Recovered/Not Resolved]
  - Foot deformity [Not Recovered/Not Resolved]
  - Decubitus ulcer [Not Recovered/Not Resolved]
  - Product dose omission issue [Unknown]

NARRATIVE: CASE EVENT DATE: 20230101
